FAERS Safety Report 13846108 (Version 1)
Quarter: 2017Q3

REPORT INFORMATION
  Report Type: Spontaneous
  Country: US (occurrence: US)
  Receive Date: 20170808
  Receipt Date: 20170808
  Transmission Date: 20171127
  Serious: No
  Sender: FDA-Public Use
  Company Number: US-BAYER-2017-144732

PATIENT
  Age: 59 Year
  Sex: Female

DRUGS (4)
  1. CYMBALTA [Concomitant]
     Active Substance: DULOXETINE HYDROCHLORIDE
     Indication: BACK PAIN
     Route: 048
  2. LISINOPRIL. [Concomitant]
     Active Substance: LISINOPRIL
     Indication: HYPERTENSION
     Route: 048
  3. ESTRADIOL. [Suspect]
     Active Substance: ESTRADIOL
     Dosage: 0.025 MG
     Route: 062
  4. PROGESTERON [Concomitant]
     Active Substance: PROGESTERONE
     Dosage: 100 MG

REACTIONS (5)
  - Therapeutic response increased [Unknown]
  - Vulvovaginal dryness [None]
  - Device adhesion issue [None]
  - Vaginal discharge [Unknown]
  - Product packaging issue [None]
